FAERS Safety Report 14181595 (Version 1)
Quarter: 2017Q4

REPORT INFORMATION
  Report Type: Report from Study
  Country: DE (occurrence: DE)
  Receive Date: 20171113
  Receipt Date: 20171113
  Transmission Date: 20180321
  Serious: Yes (Other)
  Sender: FDA-Public Use
  Company Number: DE-ROCHE-1946247

PATIENT

DRUGS (2)
  1. MYCOPHENOLATE MOFETIL. [Suspect]
     Active Substance: MYCOPHENOLATE MOFETIL
     Indication: PROPHYLAXIS AGAINST TRANSPLANT REJECTION
     Route: 048
  2. CYCLOSPORINE MICROEMULSION [Suspect]
     Active Substance: CYCLOSPORINE
     Indication: PROPHYLAXIS AGAINST TRANSPLANT REJECTION
     Route: 048

REACTIONS (9)
  - Pneumocystis jirovecii pneumonia [Unknown]
  - Pyelonephritis [Unknown]
  - Diverticular perforation [Unknown]
  - Osteoporotic fracture [Unknown]
  - Osteonecrosis [Unknown]
  - Pancreatitis [Unknown]
  - Traumatic fracture [Unknown]
  - Pneumonia [Unknown]
  - Sepsis [Unknown]
